FAERS Safety Report 9847238 (Version 1)
Quarter: 2014Q1

REPORT INFORMATION
  Report Type: Spontaneous
  Country: DK (occurrence: DK)
  Receive Date: 20140127
  Receipt Date: 20140127
  Transmission Date: 20141002
  Serious: Yes (Hospitalization)
  Sender: FDA-Public Use
  Company Number: PHHY2014DK006943

PATIENT
  Age: 18 Year
  Sex: Female

DRUGS (1)
  1. NOVYNETTE [Suspect]
     Indication: CONTRACEPTION
     Dosage: 1 DF, QD
     Route: 048
     Dates: start: 20090402

REACTIONS (10)
  - Splenomegaly [Unknown]
  - Vasodilatation [Unknown]
  - Oesophageal varices haemorrhage [Unknown]
  - Gastrointestinal perforation [Recovered/Resolved with Sequelae]
  - Gastrointestinal ischaemia [Unknown]
  - Gallbladder obstruction [Not Recovered/Not Resolved]
  - Hepatic function abnormal [Unknown]
  - Mesenteric artery thrombosis [Recovered/Resolved with Sequelae]
  - Hepatic vein thrombosis [Recovered/Resolved with Sequelae]
  - Abdominal pain [Unknown]
